FAERS Safety Report 11282630 (Version 2)
Quarter: 2015Q3

REPORT INFORMATION
  Report Type: Report from Study
  Country: FR (occurrence: FR)
  Receive Date: 20150720
  Receipt Date: 20150803
  Transmission Date: 20151125
  Serious: Yes (Death)
  Sender: FDA-Public Use
  Company Number: PHHY2013FR092634

PATIENT
  Age: 75 Year
  Sex: Male

DRUGS (3)
  1. AMN107 [Suspect]
     Active Substance: NILOTINIB
     Indication: CHRONIC MYELOID LEUKAEMIA
     Dosage: 800 MG, QD
     Route: 048
     Dates: start: 20111122
  2. AMN107 [Suspect]
     Active Substance: NILOTINIB
     Route: 048
     Dates: start: 20121101, end: 20121109
  3. AMN107 [Suspect]
     Active Substance: NILOTINIB
     Route: 048
     Dates: end: 20130613

REACTIONS (3)
  - Pain [Unknown]
  - Dizziness [Recovered/Resolved]
  - Peripheral ischaemia [Fatal]

NARRATIVE: CASE EVENT DATE: 20121101
